FAERS Safety Report 5198872-9 (Version None)
Quarter: 2006Q4

REPORT INFORMATION
  Report Type: 
  Country: None (occurrence: None)
  Receive Date: 20060925
  Receipt Date: 20050829
  Transmission Date: 20070319
  Serious: Yes (Other)
  Sender: FDA-Public Use
  Company Number: US-JNJFOC-20050900096

PATIENT
  Age: 29 Year
  Sex: Male
  Weight: 97.5234 kg

DRUGS (2)
  1. CONCERTA [Suspect]
     Indication: ATTENTION DEFICIT/HYPERACTIVITY DISORDER
     Dosage: 18 MG, 1 IN 1 DAY, ORAL
     Route: 048
  2. SEROQUEL [Concomitant]

REACTIONS (7)
  - DIARRHOEA [None]
  - DIZZINESS [None]
  - HEADACHE [None]
  - HYPERHIDROSIS [None]
  - INSOMNIA [None]
  - OFF LABEL USE [None]
  - PSYCHOTIC DISORDER [None]
